FAERS Safety Report 5951075-X (Version None)
Quarter: 2008Q4

REPORT INFORMATION
  Report Type: 
  Country: None (occurrence: None)
  Receive Date: 20081111
  Receipt Date: 20081111
  Transmission Date: 20090506
  Serious: Yes (Hospitalization)
  Sender: FDA-Public Use
  Company Number: None

PATIENT
  Age: 69 Year
  Sex: Male

DRUGS (1)
  1. WARFARIN SODIUM [Suspect]
     Indication: ATRIAL FIBRILLATION
     Dosage: 5 MG EVERYDAY PO
     Route: 048
     Dates: start: 20070317

REACTIONS (3)
  - GASTROINTESTINAL TELANGIECTASIA [None]
  - SMALL INTESTINAL HAEMORRHAGE [None]
  - THERAPEUTIC AGENT TOXICITY [None]
